FAERS Safety Report 16851193 (Version 5)
Quarter: 2020Q2

REPORT INFORMATION
  Report Type: Spontaneous
  Country: US (occurrence: US)
  Receive Date: 20190925
  Receipt Date: 20200605
  Transmission Date: 20200713
  Serious: No
  Sender: FDA-Public Use
  Company Number: US-PFIZER INC-2019411106

PATIENT
  Age: 50 Year
  Sex: Female

DRUGS (1)
  1. XELJANZ XR [Suspect]
     Active Substance: TOFACITINIB CITRATE
     Indication: RHEUMATOID ARTHRITIS
     Dosage: 11 MG, 1X/DAY
     Route: 048
     Dates: start: 201909

REACTIONS (9)
  - Acne pustular [Recovered/Resolved]
  - Musculoskeletal stiffness [Unknown]
  - Headache [Recovered/Resolved]
  - Rash [Recovered/Resolved]
  - Pain [Not Recovered/Not Resolved]
  - Vertigo [Recovered/Resolved]
  - Depression [Unknown]
  - Dizziness [Recovered/Resolved]
  - Product dose omission [Unknown]

NARRATIVE: CASE EVENT DATE: 2019
